FAERS Safety Report 24704115 (Version 3)
Quarter: 2024Q4

REPORT INFORMATION
  Report Type: Spontaneous
  Country: JP (occurrence: JP)
  Receive Date: 20241206
  Receipt Date: 20241231
  Transmission Date: 20250115
  Serious: No
  Sender: PFIZER
  Company Number: JP-ONO-2024JP024526

PATIENT
  Age: 7 Decade

DRUGS (1)
  1. BRAFTOVI [Suspect]
     Active Substance: ENCORAFENIB
     Indication: Colon cancer
     Dosage: UNK
     Route: 048
     Dates: start: 20241101

REACTIONS (1)
  - Lentigo [Not Recovered/Not Resolved]

NARRATIVE: CASE EVENT DATE: 20241122
